FAERS Safety Report 18385804 (Version 2)
Quarter: 2020Q4

REPORT INFORMATION
  Report Type: Spontaneous
  Country: IT (occurrence: IT)
  Receive Date: 20201015
  Receipt Date: 20201024
  Transmission Date: 20210114
  Serious: Yes (Death)
  Sender: FDA-Public Use
  Company Number: IT-ACCORD-205186

PATIENT
  Age: 77 Year
  Sex: Male
  Weight: 80 kg

DRUGS (14)
  1. CARDIOASPIRIN [Concomitant]
     Active Substance: ASPIRIN
  2. FLUIMUCIL [Concomitant]
     Active Substance: ACETYLCYSTEINE
  3. OMNIC [Concomitant]
     Active Substance: TAMSULOSIN HYDROCHLORIDE
  4. DIGOXIN. [Concomitant]
     Active Substance: DIGOXIN
     Indication: CARDIAC FAILURE
     Route: 048
     Dates: start: 20200710, end: 20200713
  5. PRONTINAL [Concomitant]
     Active Substance: BECLOMETHASONE DIPROPIONATE
  6. PIPERACILLIN/TAZOBACTAM [Concomitant]
     Active Substance: PIPERACILLIN SODIUM\TAZOBACTAM SODIUM
     Dates: start: 20200704, end: 20200714
  7. LEVOFLOXACIN/LEVOFLOXACIN MESYLATE [Suspect]
     Active Substance: LEVOFLOXACIN
     Indication: PNEUMONITIS
     Route: 042
     Dates: start: 20200704, end: 20200712
  8. QUARK [Concomitant]
     Active Substance: RAMIPRIL
     Dates: end: 20200713
  9. ABASAGLAR [Concomitant]
     Active Substance: INSULIN GLARGINE
  10. BRONCOVALEAS [Concomitant]
     Active Substance: ALBUTEROL
  11. SIMVASTATIN. [Suspect]
     Active Substance: SIMVASTATIN
     Indication: MYOCARDIAL ISCHAEMIA
     Route: 048
     Dates: end: 20200701
  12. ZYLORIC [Concomitant]
     Active Substance: ALLOPURINOL
  13. RIVAROXABAN [Concomitant]
     Active Substance: RIVAROXABAN
     Dates: end: 20200713
  14. OMEPRAZOLE. [Concomitant]
     Active Substance: OMEPRAZOLE

REACTIONS (2)
  - Rhabdomyolysis [Fatal]
  - Acute kidney injury [Fatal]

NARRATIVE: CASE EVENT DATE: 20200713
